FAERS Safety Report 24303897 (Version 3)
Quarter: 2024Q4

REPORT INFORMATION
  Report Type: Spontaneous
  Country: US (occurrence: US)
  Receive Date: 20240910
  Receipt Date: 20241002
  Transmission Date: 20250115
  Serious: No
  Sender: PFIZER
  Company Number: US-PFIZER INC-PV202300066689

PATIENT
  Age: 76 Year
  Sex: Male

DRUGS (6)
  1. BRAFTOVI [Suspect]
     Active Substance: ENCORAFENIB
     Indication: Neoplasm malignant
     Dosage: 75 MG
  2. BRAFTOVI [Suspect]
     Active Substance: ENCORAFENIB
     Dosage: TAKE 6 CAPSULES (450 MG TOTAL) BY MOUTH, DAILY
     Route: 048
  3. BRAFTOVI [Suspect]
     Active Substance: ENCORAFENIB
     Dosage: TAKE 4 CAPSULES (300 MG TOTAL) BY MOUTH, DAILY
     Route: 048
  4. MEKTOVI [Suspect]
     Active Substance: BINIMETINIB
     Indication: Neoplasm malignant
     Dosage: 15 MG
  5. MEKTOVI [Suspect]
     Active Substance: BINIMETINIB
     Dosage: TAKE 2 TABLETS (30 MG TOTAL) BY MOUTH, 2 TIMES A DAY
     Route: 048
  6. MEKTOVI [Suspect]
     Active Substance: BINIMETINIB
     Dosage: TAKE 6 TABLETS, DAILY

REACTIONS (1)
  - Platelet count decreased [Unknown]
